FAERS Safety Report 4492367-3 (Version None)
Quarter: 2004Q3

REPORT INFORMATION
  Report Type: 
  Country: None (occurrence: None)
  Receive Date: 20040921
  Receipt Date: 20030801
  Transmission Date: 20050211
  Serious: Yes (Hospitalization)
  Sender: FDA-Public Use
  Company Number: 163-20785-03080126

PATIENT
  Age: 73 Year
  Sex: Female
  Weight: 76.6579 kg

DRUGS (7)
  1. THALOMID [Suspect]
     Indication: RENAL CELL CARCINOMA STAGE UNSPECIFIED
     Dosage: 200 MG, DAILY, ORAL
     Route: 048
     Dates: start: 20030714
  2. INTERFERON             (INTERFERON) [Suspect]
     Indication: RENAL CELL CARCINOMA STAGE UNSPECIFIED
     Dosage: 1 MILLION UNITS, DAILY
     Dates: start: 20030714
  3. CARDURA [Concomitant]
  4. LASIX [Concomitant]
  5. DECADRON [Concomitant]
  6. PROTONIX [Concomitant]
  7. VICODIN [Concomitant]

REACTIONS (14)
  - ASTHENIA [None]
  - BLOOD GLUCOSE INCREASED [None]
  - BRAIN MASS [None]
  - BRAIN OEDEMA [None]
  - CARDIAC MURMUR [None]
  - CONDITION AGGRAVATED [None]
  - CONVULSION [None]
  - DISEASE PROGRESSION [None]
  - HAEMOGLOBIN DECREASED [None]
  - LUNG INFILTRATION [None]
  - METASTASES TO CENTRAL NERVOUS SYSTEM [None]
  - MUSCLE CRAMP [None]
  - PYREXIA [None]
  - VERTEBRAL COLUMN MASS [None]
